FAERS Safety Report 8849934 (Version 1)
Quarter: 2012Q4

REPORT INFORMATION
  Report Type: 
  Country: NL (occurrence: NL)
  Receive Date: 20121019
  Receipt Date: 20121019
  Transmission Date: 20130627
  Serious: Yes (Other)
  Sender: FDA-Public Use
  Company Number: NL-TEVA-2011005586

PATIENT
  Sex: Female

DRUGS (9)
  1. MODIODAL [Suspect]
     Indication: NARCOLEPSY
     Dosage: 200 Milligram Daily;
     Route: 048
     Dates: start: 1996, end: 20111028
  2. MODIODAL [Suspect]
     Dosage: 200 Milligram Daily;
     Route: 048
     Dates: start: 201202
  3. MAGNESIUM HYDROXIDE [Concomitant]
  4. DOMPERIDON [Concomitant]
  5. METAMUCIL [Concomitant]
  6. FORLAX [Concomitant]
  7. KESTINE [Concomitant]
  8. VENTOLIN [Concomitant]
  9. OMEPRAZOL [Concomitant]

REACTIONS (9)
  - Muscular dystrophy [Unknown]
  - Muscular weakness [Not Recovered/Not Resolved]
  - Speech disorder [Unknown]
  - Skin odour abnormal [Not Recovered/Not Resolved]
  - Muscle spasms [Unknown]
  - Weight decreased [Not Recovered/Not Resolved]
  - Decreased appetite [Not Recovered/Not Resolved]
  - Chest pain [Unknown]
  - Anxiety [Not Recovered/Not Resolved]
